FAERS Safety Report 9290066 (Version 1)
Quarter: 2013Q2

REPORT INFORMATION
  Report Type: Spontaneous
  Country: US (occurrence: US)
  Receive Date: 20130515
  Receipt Date: 20130515
  Transmission Date: 20140414
  Serious: No
  Sender: FDA-Public Use
  Company Number: US-009507513-1305USA009138

PATIENT
  Sex: Male
  Weight: 76.64 kg

DRUGS (2)
  1. REBETOL [Suspect]
     Dosage: UNK
     Route: 048
     Dates: start: 2007
  2. PEGINTRON [Suspect]
     Dosage: UNK
     Dates: start: 2007

REACTIONS (1)
  - Dermatitis [Unknown]
